FAERS Safety Report 10497250 (Version 1)
Quarter: 2014Q4

REPORT INFORMATION
  Report Type: Spontaneous
  Country: CH (occurrence: CH)
  Receive Date: 20141006
  Receipt Date: 20141006
  Transmission Date: 20150528
  Serious: Yes (Other)
  Sender: FDA-Public Use
  Company Number: CH-BAYER-2014-143481

PATIENT
  Age: 60 Year
  Sex: Female

DRUGS (3)
  1. CIPROXIN [Suspect]
     Active Substance: CIPROFLOXACIN
     Dosage: UNK
     Dates: start: 20140628, end: 20140711
  2. FLAGYL [Suspect]
     Active Substance: METRONIDAZOLE\METRONIDAZOLE HYDROCHLORIDE
     Dosage: 500 MG, UNK
     Dates: start: 20140628, end: 20140711
  3. ZYVOXID [Suspect]
     Active Substance: LINEZOLID
     Dosage: 600 MG, UNK
     Dates: start: 20140628, end: 20140711

REACTIONS (1)
  - Neutropenia [Recovered/Resolved]

NARRATIVE: CASE EVENT DATE: 20140710
